FAERS Safety Report 6257754-1 (Version None)
Quarter: 2009Q3

REPORT INFORMATION
  Report Type: 
  Country: None (occurrence: None)
  Receive Date: 20090706
  Receipt Date: 20090622
  Transmission Date: 20100115
  Serious: Yes (Other)
  Sender: FDA-Public Use
  Company Number: GB-MYLANLABS-2009S1011077

PATIENT
  Age: 60 Year
  Sex: Male

DRUGS (1)
  1. BACLOFEN [Suspect]
     Indication: MULTIPLE SCLEROSIS
     Dates: start: 20080101

REACTIONS (1)
  - DIABETES MELLITUS [None]
